FAERS Safety Report 8991284 (Version 2)
Quarter: 2013Q1

REPORT INFORMATION
  Report Type: Spontaneous
  Country: HR (occurrence: HR)
  Receive Date: 20121231
  Receipt Date: 20130222
  Transmission Date: 20140127
  Serious: Yes (Hospitalization)
  Sender: FDA-Public Use
  Company Number: HR-ACCORD-015787

PATIENT
  Age: 31 Year
  Sex: Female

DRUGS (4)
  1. MYCOPHENOLATE MOFETIL [Suspect]
     Indication: PANCREAS TRANSPLANT
  2. TACROLIMUS [Suspect]
     Indication: PANCREAS TRANSPLANT
  3. PREDNISONE [Suspect]
     Indication: PANCREAS TRANSPLANT
  4. ANTITHYMOCYTE IMMUNOGLOBULIN [Suspect]
     Indication: PANCREAS TRANSPLANT

REACTIONS (6)
  - Cytomegalovirus viraemia [Recovered/Resolved]
  - Leukopenia [Recovered/Resolved]
  - Aspergillus infection [Recovered/Resolved]
  - Neutropenia [Recovered/Resolved]
  - Off label use [Unknown]
  - Enterobacter infection [Recovered/Resolved]
